FAERS Safety Report 20673553 (Version 2)
Quarter: 2022Q2

REPORT INFORMATION
  Report Type: Spontaneous
  Country: US (occurrence: US)
  Receive Date: 20220405
  Receipt Date: 20220505
  Transmission Date: 20220721
  Serious: No
  Sender: FDA-Public Use
  Company Number: US-BAYER-2022A048165

PATIENT
  Age: 37 Year
  Sex: Female

DRUGS (1)
  1. KYLEENA [Suspect]
     Active Substance: LEVONORGESTREL
     Indication: Contraception
     Dosage: 17.5?G/DAY
     Route: 015
     Dates: start: 20220222

REACTIONS (1)
  - Device expulsion [Not Recovered/Not Resolved]

NARRATIVE: CASE EVENT DATE: 20220331
